FAERS Safety Report 6680431-X (Version None)
Quarter: 2010Q2

REPORT INFORMATION
  Report Type: 
  Country: None (occurrence: None)
  Receive Date: 20100414
  Receipt Date: 20100405
  Transmission Date: 20101027
  Serious: Yes (Hospitalization, Other)
  Sender: FDA-Public Use
  Company Number: US-BIOGENIDEC-2010BI009108

PATIENT
  Age: 62 Year
  Sex: Male
  Weight: 83 kg

DRUGS (25)
  1. TYSABRI [Suspect]
     Indication: CROHN'S DISEASE
     Route: 042
     Dates: start: 20091021, end: 20100210
  2. FLAGYL [Concomitant]
  3. CHARCOAL [Concomitant]
  4. LOMOTIL [Concomitant]
  5. PEPTO BISMOL [Concomitant]
  6. POTASSIUM [Concomitant]
  7. MAXZIDE [Concomitant]
     Indication: OEDEMA
  8. ZOFRAN [Concomitant]
     Indication: NAUSEA
  9. TRIMAX [Concomitant]
     Indication: MUSCLE SPASMS
  10. IMODIUM [Concomitant]
     Dates: start: 20030101
  11. TYLENOL-500 [Concomitant]
  12. EXCEDRIN (MIGRAINE) [Concomitant]
  13. PREVACID [Concomitant]
  14. SONATA [Concomitant]
  15. PROBENECID [Concomitant]
  16. PHENERGAN [Concomitant]
  17. HYOSCYAMINE [Concomitant]
  18. ALAPRAM [Concomitant]
  19. PHAYZYME [Concomitant]
     Route: 048
     Dates: start: 20100305
  20. APRISO [Concomitant]
     Route: 048
     Dates: start: 20091201
  21. COMPAZINE [Concomitant]
     Route: 048
     Dates: start: 20100201
  22. LOMOTIL [Concomitant]
     Route: 048
     Dates: start: 20100201
  23. ZOFRAN [Concomitant]
     Route: 048
     Dates: start: 20100224
  24. PREDNISOLONE [Concomitant]
  25. ZYRTEC [Concomitant]

REACTIONS (3)
  - ANASTOMOTIC COMPLICATION [None]
  - INTESTINAL STENOSIS [None]
  - MYOCARDIAL INFARCTION [None]
